FAERS Safety Report 8151426-4 (Version None)
Quarter: 2012Q1

REPORT INFORMATION
  Report Type: 
  Country: None (occurrence: None)
  Receive Date: 20120220
  Receipt Date: 20120206
  Transmission Date: 20120608
  Serious: Yes (Hospitalization)
  Sender: FDA-Public Use
  Company Number: GR-ROCHE-1037509

PATIENT
  Sex: Female
  Weight: 75 kg

DRUGS (12)
  1. ZOFRAN [Concomitant]
     Indication: PREMEDICATION
     Route: 042
     Dates: start: 20111222
  2. DEXAMETHASONE [Concomitant]
     Indication: PREMEDICATION
     Route: 042
     Dates: start: 20111222
  3. PERINDOPRIL ERBUMINE [Concomitant]
     Indication: HYPERTENSION
     Dosage: FREQUENCY: 1-0-1
     Dates: start: 20110715
  4. AVASTIN [Suspect]
     Indication: RENAL CANCER METASTATIC
     Dosage: DATE OF LAST DOSE PRIOR TO SAE; 19 JAN 2012
     Route: 042
     Dates: start: 20111222, end: 20120119
  5. GLUCOPHAGE [Concomitant]
     Indication: DIABETES MELLITUS
     Dosage: FREQUENCY: 0-1-0
     Dates: start: 20110715, end: 20120125
  6. LASIX [Concomitant]
     Indication: HYPERTENSION
     Dosage: FREQUENCY: 1/2X2
     Dates: start: 20120112, end: 20120125
  7. TEMSIROLIMUS [Suspect]
     Indication: RENAL CANCER METASTATIC
     Dosage: DATE OF LAST DOSE PRIOR TO SAE:19 JAN 2012
     Route: 042
     Dates: start: 20111222, end: 20120119
  8. ZOMETA [Concomitant]
     Indication: METASTASES TO BONE
     Route: 042
     Dates: start: 20111130, end: 20111222
  9. DIAMICRON [Concomitant]
     Indication: DIABETES MELLITUS
     Dosage: FREQUENCY:2-0-1
     Route: 042
     Dates: start: 20110715
  10. ZANTAC [Concomitant]
     Indication: PREMEDICATION
     Route: 042
     Dates: start: 20111222
  11. LASIX [Concomitant]
     Indication: BLOOD CREATININE
     Dosage: FREQUENCY:1/2X1
     Route: 048
     Dates: start: 20120126, end: 20120128
  12. NORVASC [Concomitant]
     Dosage: OCCASIONALLY WHEN VITAL SIGNS ELEVATED

REACTIONS (1)
  - BLOOD CREATININE [None]
